FAERS Safety Report 5895096-4 (Version None)
Quarter: 2008Q3

REPORT INFORMATION
  Report Type: 
  Country: None (occurrence: None)
  Receive Date: 20080924
  Receipt Date: 20080912
  Transmission Date: 20090109
  Serious: Yes (Hospitalization)
  Sender: FDA-Public Use
  Company Number: DE-ROCHE-581255

PATIENT
  Sex: Female

DRUGS (1)
  1. BONIVA [Suspect]
     Indication: OSTEOPOROSIS
     Route: 030

REACTIONS (4)
  - DRUG ADMINISTRATION ERROR [None]
  - INFLAMMATION [None]
  - INJECTION SITE PAIN [None]
  - LYMPHADENOPATHY [None]
